FAERS Safety Report 17561947 (Version 2)
Quarter: 2025Q4

REPORT INFORMATION
  Report Type: Spontaneous
  Country: EU (occurrence: EU)
  Receive Date: 20200319
  Receipt Date: 20251125
  Transmission Date: 20260118
  Serious: Yes (Life-Threatening)
  Sender: MYLAN
  Company Number: None

PATIENT
  Age: 63 Year
  Sex: Male
  Weight: 120 kg

DRUGS (20)
  1. DEXAMETHASONE [Suspect]
     Active Substance: DEXAMETHASONE
     Indication: Product used for unknown indication
     Dosage: UNK
     Dates: start: 20200127, end: 20200127
  2. DEXAMETHASONE [Suspect]
     Active Substance: DEXAMETHASONE
     Dosage: UNK
     Route: 042
     Dates: start: 20200127, end: 20200127
  3. DEXAMETHASONE [Suspect]
     Active Substance: DEXAMETHASONE
     Dosage: UNK
     Route: 042
     Dates: start: 20200127, end: 20200127
  4. DEXAMETHASONE [Suspect]
     Active Substance: DEXAMETHASONE
     Dosage: UNK
     Dates: start: 20200127, end: 20200127
  5. CISATRACURIUM [Suspect]
     Active Substance: CISATRACURIUM
     Indication: General anaesthesia
     Dosage: 10 MILLIGRAM, 1 TOTAL
     Dates: start: 20200127, end: 20200127
  6. CISATRACURIUM [Suspect]
     Active Substance: CISATRACURIUM
     Dosage: 10 MILLIGRAM, 1 TOTAL
     Route: 042
     Dates: start: 20200127, end: 20200127
  7. CISATRACURIUM [Suspect]
     Active Substance: CISATRACURIUM
     Dosage: 10 MILLIGRAM, 1 TOTAL
     Route: 042
     Dates: start: 20200127, end: 20200127
  8. CISATRACURIUM [Suspect]
     Active Substance: CISATRACURIUM
     Dosage: 10 MILLIGRAM, 1 TOTAL
     Dates: start: 20200127, end: 20200127
  9. SUFENTANIL [Suspect]
     Active Substance: SUFENTANIL
     Indication: General anaesthesia
     Dosage: 35 MICROGRAM, 1 TOTAL
     Dates: start: 20200127, end: 20200127
  10. SUFENTANIL [Suspect]
     Active Substance: SUFENTANIL
     Dosage: 35 MICROGRAM, 1 TOTAL
     Route: 042
     Dates: start: 20200127, end: 20200127
  11. SUFENTANIL [Suspect]
     Active Substance: SUFENTANIL
     Dosage: 35 MICROGRAM, 1 TOTAL
     Route: 042
     Dates: start: 20200127, end: 20200127
  12. SUFENTANIL [Suspect]
     Active Substance: SUFENTANIL
     Dosage: 35 MICROGRAM, 1 TOTAL
     Dates: start: 20200127, end: 20200127
  13. CEFAZOLIN SODIUM [Suspect]
     Active Substance: CEFAZOLIN SODIUM
     Indication: General anaesthesia
     Dosage: 2 GRAM, 1 TOTAL
     Dates: start: 20200127, end: 20200127
  14. CEFAZOLIN SODIUM [Suspect]
     Active Substance: CEFAZOLIN SODIUM
     Dosage: 2 GRAM, 1 TOTAL
     Route: 042
     Dates: start: 20200127, end: 20200127
  15. CEFAZOLIN SODIUM [Suspect]
     Active Substance: CEFAZOLIN SODIUM
     Dosage: 2 GRAM, 1 TOTAL
     Route: 042
     Dates: start: 20200127, end: 20200127
  16. CEFAZOLIN SODIUM [Suspect]
     Active Substance: CEFAZOLIN SODIUM
     Dosage: 2 GRAM, 1 TOTAL
     Dates: start: 20200127, end: 20200127
  17. PROPOFOL LIPURO [Suspect]
     Active Substance: PROPOFOL
     Indication: General anaesthesia
     Dosage: 300 MILLIGRAM, 1 TOTAL
     Dates: start: 20200127, end: 20200127
  18. PROPOFOL LIPURO [Suspect]
     Active Substance: PROPOFOL
     Dosage: 300 MILLIGRAM, 1 TOTAL
     Route: 042
     Dates: start: 20200127, end: 20200127
  19. PROPOFOL LIPURO [Suspect]
     Active Substance: PROPOFOL
     Dosage: 300 MILLIGRAM, 1 TOTAL
     Route: 042
     Dates: start: 20200127, end: 20200127
  20. PROPOFOL LIPURO [Suspect]
     Active Substance: PROPOFOL
     Dosage: 300 MILLIGRAM, 1 TOTAL
     Dates: start: 20200127, end: 20200127

REACTIONS (2)
  - Anaphylactic shock [Recovered/Resolved]
  - Anaphylactoid reaction [Recovered/Resolved]

NARRATIVE: CASE EVENT DATE: 20200127
